FAERS Safety Report 25460566 (Version 1)
Quarter: 2025Q2

REPORT INFORMATION
  Report Type: Spontaneous
  Country: US (occurrence: None)
  Receive Date: 20250619
  Receipt Date: 20250619
  Transmission Date: 20250716
  Serious: Yes (unspecified)
  Sender: FDA-CTU
  Company Number: None

PATIENT
  Age: 65 Year
  Sex: Female

DRUGS (1)
  1. TERIPARATIDE [Suspect]
     Active Substance: TERIPARATIDE
     Indication: Osteoporosis
     Dosage: FREQUENCY : DAILY;?

REACTIONS (9)
  - Myalgia [None]
  - Muscle spasms [None]
  - Neck pain [None]
  - Asthenia [None]
  - Nephrolithiasis [None]
  - Fatigue [None]
  - Vision blurred [None]
  - Dizziness [None]
  - Headache [None]
